FAERS Safety Report 13000440 (Version 2)
Quarter: 2016Q4

REPORT INFORMATION
  Report Type: Spontaneous
  Country: GB (occurrence: GB)
  Receive Date: 20161206
  Receipt Date: 20161206
  Transmission Date: 20170207
  Serious: Yes (Other)
  Sender: FDA-Public Use
  Company Number: GB-CIPLA LTD.-2016GB22644

PATIENT

DRUGS (9)
  1. CHLORDIAZEPOXIDE. [Concomitant]
     Active Substance: CHLORDIAZEPOXIDE
     Dosage: 1 DF, UNK
     Route: 065
     Dates: start: 20161111
  2. WARFARIN SODIUM. [Concomitant]
     Active Substance: WARFARIN SODIUM
     Dosage: UNK, AS DIRECTED ON YOUR YELLOW BOOK
     Route: 065
     Dates: start: 20161012, end: 20161109
  3. BENDROFLUMETHIAZIDE [Concomitant]
     Active Substance: BENDROFLUMETHIAZIDE
     Dosage: 1 DF, QD, EACH MORNING
     Route: 065
     Dates: start: 20160323
  4. BETAHISTINE [Concomitant]
     Active Substance: BETAHISTINE
     Dosage: 1 DF, TID
     Route: 065
     Dates: start: 20160916
  5. ATENOLOL. [Concomitant]
     Active Substance: ATENOLOL
     Dosage: 1 DF, QD, EACH MORNING.
     Route: 065
     Dates: start: 20160323
  6. DIAZEPAM. [Concomitant]
     Active Substance: DIAZEPAM
     Dosage: 1 DF, MAXIMUM THREE TIMES A DAY
     Route: 065
     Dates: start: 20161110
  7. CITALOPRAM [Suspect]
     Active Substance: CITALOPRAM HYDROBROMIDE
     Dosage: UNK
     Route: 065
     Dates: start: 20161111
  8. PROCHLORPERAZINE. [Concomitant]
     Active Substance: PROCHLORPERAZINE
     Dosage: 1 DF, BID
     Route: 065
     Dates: start: 20161027
  9. SIMVASTATIN. [Concomitant]
     Active Substance: SIMVASTATIN
     Dosage: 1 DF, QD, IN EVENING
     Route: 065
     Dates: start: 20160323

REACTIONS (2)
  - Dyskinesia [Recovering/Resolving]
  - Chills [Recovering/Resolving]

NARRATIVE: CASE EVENT DATE: 20161111
